FAERS Safety Report 8605076 (Version 2)
Quarter: 2013Q1

REPORT INFORMATION
  Report Type: Spontaneous
  Country: US (occurrence: US)
  Receive Date: 20120608
  Receipt Date: 20130311
  Transmission Date: 20140127
  Serious: Yes (Other)
  Sender: FDA-Public Use
  Company Number: US-ROCHE-790162

PATIENT
  Age: 14 Year
  Sex: Male
  Weight: 77.18 kg

DRUGS (2)
  1. ACCUTANE [Suspect]
     Indication: ACNE
     Dosage: 20-60 MG
     Route: 048
     Dates: start: 200408, end: 200412
  2. ACCUTANE [Suspect]
     Route: 048

REACTIONS (14)
  - Colitis ulcerative [Unknown]
  - Anxiety [Unknown]
  - Depression [Unknown]
  - Epistaxis [Unknown]
  - Alopecia [Unknown]
  - Chapped lips [Unknown]
  - Back pain [Unknown]
  - Blood triglycerides increased [Unknown]
  - Blood cholesterol increased [Unknown]
  - Blood pressure increased [Unknown]
  - Dry skin [Unknown]
  - Eczema [Unknown]
  - Ingrowing nail [Unknown]
  - Erythema [Unknown]
